FAERS Safety Report 12067644 (Version 1)
Quarter: 2016Q1

REPORT INFORMATION
  Report Type: Spontaneous
  Country: US (occurrence: None)
  Receive Date: 20160210
  Receipt Date: 20160210
  Transmission Date: 20160526
  Serious: No
  Sender: FDA-Public Use
  Company Number: None

PATIENT
  Age: 2 Year
  Sex: Male
  Weight: 13.2 kg

DRUGS (1)
  1. MELPHALAN [Suspect]
     Active Substance: MELPHALAN
     Dates: end: 20160106

REACTIONS (2)
  - Pulmonary function test decreased [None]
  - Oxygen saturation decreased [None]

NARRATIVE: CASE EVENT DATE: 20160204
